FAERS Safety Report 5367001-0 (Version None)
Quarter: 2007Q2

REPORT INFORMATION
  Report Type: 
  Country: None (occurrence: None)
  Receive Date: 20070622
  Receipt Date: 20070613
  Transmission Date: 20071010
  Serious: Yes (Life-Threatening, Hospitalization, Other)
  Sender: FDA-Public Use
  Company Number: FI-AVENTIS-200712585GDDC

PATIENT
  Age: 62 Year
  Sex: Female

DRUGS (7)
  1. DOCETAXEL [Suspect]
     Indication: BREAST CANCER
     Route: 042
     Dates: start: 20060905, end: 20060905
  2. DOCETAXEL [Suspect]
     Dosage: DOSE: CYCLE 2
  3. CAPECITABINE [Suspect]
     Indication: BREAST CANCER
     Dosage: DOSE: 1500 MG  TIMES 2
     Route: 048
     Dates: start: 20060905, end: 20060914
  4. CHLORDIAZEPOXIDE HCL [Concomitant]
  5. BURANA [Concomitant]
  6. METOPRAM [Concomitant]
  7. DOXEPIN HCL [Concomitant]
     Indication: DEPRESSION
     Dosage: DOSE: UNK

REACTIONS (4)
  - BRAIN OEDEMA [None]
  - HAEMORRHAGE INTRACRANIAL [None]
  - HEADACHE [None]
  - NEUTROPENIC INFECTION [None]
